FAERS Safety Report 8226367-4 (Version None)
Quarter: 2012Q1

REPORT INFORMATION
  Report Type: 
  Country: None (occurrence: None)
  Receive Date: 20120321
  Receipt Date: 20120312
  Transmission Date: 20120608
  Serious: Yes (Hospitalization)
  Sender: FDA-Public Use
  Company Number: NL-ASTRAZENECA-2012SE17001

PATIENT
  Age: 44 Year
  Sex: Male

DRUGS (7)
  1. CISPLATIN [Concomitant]
     Indication: LARYNGEAL CANCER STAGE 0
  2. APREPITANT [Interacting]
     Indication: LARYNGEAL CANCER STAGE 0
     Dosage: 3-DAY REGIMEN:125, 80-80 MG)
  3. DEXAMETHASONE [Concomitant]
  4. QUETIAPINE [Interacting]
     Route: 048
  5. ONDANSETRON [Concomitant]
  6. QUETIAPINE [Suspect]
     Indication: ANXIETY
     Route: 048
  7. CITALOPRAM HYDROBROMIDE [Concomitant]
     Indication: DEPRESSION

REACTIONS (4)
  - DEHYDRATION [None]
  - DRUG INTERACTION [None]
  - SOMNOLENCE [None]
  - RENAL IMPAIRMENT [None]
